FAERS Safety Report 9664902 (Version 1)
Quarter: 2013Q4

REPORT INFORMATION
  Report Type: Report from Study
  Country: JP (occurrence: JP)
  Receive Date: 20131101
  Receipt Date: 20131101
  Transmission Date: 20140711
  Serious: Yes (Other)
  Sender: FDA-Public Use
  Company Number: JP-GLAXOSMITHKLINE-B0938508A

PATIENT
  Sex: Male
  Weight: 45 kg

DRUGS (10)
  1. REVOLADE [Suspect]
     Indication: IMMUNE THROMBOCYTOPENIC PURPURA
     Route: 048
     Dates: start: 20111017, end: 20111030
  2. REVOLADE [Suspect]
     Indication: IMMUNE THROMBOCYTOPENIC PURPURA
     Route: 048
     Dates: start: 20111031
  3. RENIVEZE [Concomitant]
     Route: 048
     Dates: end: 20111031
  4. URDESTON [Concomitant]
     Route: 048
  5. AMLODIPINE [Concomitant]
     Route: 048
  6. CHINESE MEDICINE [Concomitant]
     Route: 048
  7. OMEPRAL [Concomitant]
     Route: 048
     Dates: end: 20111221
  8. AMINOLEBAN EN [Concomitant]
     Route: 048
     Dates: start: 20111028, end: 20111103
  9. NEXIUM [Concomitant]
     Route: 048
     Dates: start: 20111222, end: 20111225
  10. LANSOPRAZOLE [Concomitant]
     Route: 048
     Dates: start: 20111226

REACTIONS (2)
  - Myelodysplastic syndrome [Unknown]
  - Anaemia [Unknown]
